FAERS Safety Report 10568547 (Version 3)
Quarter: 2014Q4

REPORT INFORMATION
  Report Type: Spontaneous
  Country: FR (occurrence: FR)
  Receive Date: 20141106
  Receipt Date: 20141119
  Transmission Date: 20150529
  Serious: Yes (Hospitalization, Other)
  Sender: FDA-Public Use
  Company Number: FR-BAYER-2014-144602

PATIENT
  Age: 81 Year
  Sex: Female
  Weight: 70 kg

DRUGS (7)
  1. ADEMPAS [Suspect]
     Active Substance: RIOCIGUAT
     Indication: PULMONARY HYPERTENSION
     Dosage: 2.5 MG, TID
     Route: 048
     Dates: start: 201406
  2. PREVISCAN [Concomitant]
     Active Substance: FLUINDIONE
     Indication: PULMONARY HYPERTENSION
     Dosage: 15 MG, UNK
     Route: 048
     Dates: start: 2009
  3. LEVOTHYROX [Concomitant]
     Active Substance: LEVOTHYROXINE
     Indication: HYPOTHYROIDISM
     Dosage: UNK
     Route: 048
     Dates: start: 200908
  4. ARIMIDEX [Concomitant]
     Active Substance: ANASTROZOLE
     Indication: BREAST CANCER
     Dosage: UNK
     Route: 048
     Dates: start: 2013
  5. FUROSEMIDE. [Concomitant]
     Active Substance: FUROSEMIDE
     Dosage: 60 MG, QD
     Route: 048
     Dates: start: 200908
  6. TRACLEER [Concomitant]
     Active Substance: BOSENTAN\BOSENTAN MONOHYDRATE
     Indication: PULMONARY HYPERTENSION
     Dosage: 250 MG, UNK
     Route: 048
     Dates: start: 2009
  7. SEROPLEX [Concomitant]
     Active Substance: ESCITALOPRAM OXALATE
     Indication: ANXIETY
     Dosage: 10 MG, UNK
     Route: 048
     Dates: start: 200904

REACTIONS (6)
  - Vomiting [Recovered/Resolved]
  - Drug titration error [None]
  - Abdominal pain [Recovered/Resolved]
  - Oesophagitis haemorrhagic [Recovered/Resolved]
  - Faeces discoloured [Recovered/Resolved]
  - Haematemesis [Recovered/Resolved]

NARRATIVE: CASE EVENT DATE: 20140915
